FAERS Safety Report 15371573 (Version 2)
Quarter: 2018Q4

REPORT INFORMATION
  Report Type: Spontaneous
  Country: FR (occurrence: FR)
  Receive Date: 20180911
  Receipt Date: 20181011
  Transmission Date: 20190204
  Serious: Yes (Death)
  Sender: FDA-Public Use
  Company Number: FR-MYLANLABS-2018M1066498

PATIENT
  Age: 59 Year
  Sex: Male
  Weight: 87 kg

DRUGS (5)
  1. CYTARABINE. [Suspect]
     Active Substance: CYTARABINE
     Indication: MANTLE CELL LYMPHOMA STAGE III
     Dosage: 400 MG/M2, QD
     Route: 041
     Dates: start: 20150310, end: 20150313
  2. OXALIPLATIN. [Suspect]
     Active Substance: OXALIPLATIN
     Indication: MANTLE CELL LYMPHOMA STAGE III
     Dosage: 130 MG/M2, Q3W
     Route: 041
     Dates: start: 20141210, end: 20150209
  3. ALKERAN [Suspect]
     Active Substance: MELPHALAN
     Indication: MANTLE CELL LYMPHOMA STAGE III
     Dosage: 140 MG/M2, TOTAL
     Route: 041
     Dates: start: 20150314, end: 20150314
  4. ETOPOSIDE. [Suspect]
     Active Substance: ETOPOSIDE
     Indication: MANTLE CELL LYMPHOMA STAGE III
     Dosage: 400 MG/M2, QD
     Route: 041
     Dates: start: 20150310, end: 20150313
  5. BICNU [Suspect]
     Active Substance: CARMUSTINE
     Indication: MANTLE CELL LYMPHOMA STAGE III
     Dosage: 300 MG/M2, TOTAL
     Route: 041
     Dates: start: 20150309, end: 20150309

REACTIONS (2)
  - Venoocclusive liver disease [Fatal]
  - Multiple organ dysfunction syndrome [Fatal]

NARRATIVE: CASE EVENT DATE: 20150323
